FAERS Safety Report 4610541-X (Version None)
Quarter: 2005Q2

REPORT INFORMATION
  Report Type: 
  Country: None (occurrence: None)
  Receive Date: 20050228
  Receipt Date: 20041111
  Transmission Date: 20051028
  Serious: Yes (Other)
  Sender: FDA-Public Use
  Company Number: 238966

PATIENT
  Age: 43 Year
  Sex: Female
  Weight: 75.3 kg

DRUGS (1)
  1. NOVOLOG MIX 70/30 [Suspect]
     Indication: INSULIN-REQUIRING TYPE II DIABETES MELLITUS
     Dosage: 65 IU, QD; SUBCUTANEOUS
     Route: 058
     Dates: start: 20040301, end: 20040824

REACTIONS (1)
  - HYPERSENSITIVITY [None]
